FAERS Safety Report 7475824-7 (Version None)
Quarter: 2011Q2

REPORT INFORMATION
  Report Type: 
  Country: None (occurrence: None)
  Receive Date: 20110512
  Receipt Date: 20110508
  Transmission Date: 20111010
  Serious: No
  Sender: FDA-Public Use
  Company Number: US-TEVA-281077USA

PATIENT
  Sex: Female
  Weight: 55.842 kg

DRUGS (3)
  1. PLAN B ONE-STEP [Suspect]
     Indication: POST COITAL CONTRACEPTION
     Dosage: 1.5 MILLIGRAM;
     Route: 048
     Dates: start: 20110503, end: 20110503
  2. BENADRYL [Concomitant]
     Indication: MULTIPLE ALLERGIES
     Dosage: 25 MILLIGRAM;
  3. SINGULAIR [Concomitant]
     Indication: MULTIPLE ALLERGIES
     Dosage: 10 MILLIGRAM;

REACTIONS (2)
  - FATIGUE [None]
  - MENSTRUATION IRREGULAR [None]
